FAERS Safety Report 7384087-2 (Version None)
Quarter: 2011Q1

REPORT INFORMATION
  Report Type: 
  Country: None (occurrence: None)
  Receive Date: 20110330
  Receipt Date: 20110318
  Transmission Date: 20110831
  Serious: Yes (Hospitalization)
  Sender: FDA-Public Use
  Company Number: A0882981A

PATIENT
  Age: 66 Year
  Sex: Male

DRUGS (6)
  1. NORVASC [Concomitant]
  2. AVANDIA [Suspect]
     Dosage: 4MG THREE TIMES PER DAY
     Route: 048
     Dates: start: 20010724, end: 20070329
  3. ACCUPRIL [Concomitant]
  4. ZOCOR [Concomitant]
  5. GLUCOVANCE [Concomitant]
  6. ASPIRIN [Concomitant]

REACTIONS (6)
  - HYPERCHOLESTEROLAEMIA [None]
  - CARDIAC DISORDER [None]
  - HYPERTENSION [None]
  - MYOCARDIAL INFARCTION [None]
  - ATRIAL FIBRILLATION [None]
  - ARTERIOSCLEROSIS CORONARY ARTERY [None]
